FAERS Safety Report 4878922-7 (Version None)
Quarter: 2005Q4

REPORT INFORMATION
  Report Type: 
  Country: None (occurrence: None)
  Receive Date: 20051209
  Receipt Date: 20050509
  Transmission Date: 20060501
  Serious: Yes (Other)
  Sender: FDA-Public Use
  Company Number: USA-2005-0020200

PATIENT
  Sex: Male

DRUGS (2)
  1. OXYCONTIN [Suspect]
     Indication: PAIN
  2. DILANTIN [Suspect]
     Indication: CONVULSION

REACTIONS (3)
  - CONVULSION [None]
  - NAUSEA [None]
  - WEIGHT DECREASED [None]
